FAERS Safety Report 11444297 (Version 3)
Quarter: 2017Q1

REPORT INFORMATION
  Report Type: Spontaneous
  Country: JP (occurrence: JP)
  Receive Date: 20150901
  Receipt Date: 20170206
  Transmission Date: 20170428
  Serious: Yes (Life-Threatening, Hospitalization)
  Sender: FDA-Public Use
  Company Number: JP-AMGEN-JPNSP2015085157

PATIENT
  Age: 57 Year
  Sex: Female
  Weight: 47 kg

DRUGS (24)
  1. PREDONINE [Concomitant]
     Active Substance: PREDNISOLONE
     Dosage: 100 MG, UNK
     Route: 065
     Dates: start: 20150901
  2. G-LASTA [Suspect]
     Active Substance: PEGFILGRASTIM
     Indication: COLONY STIMULATING FACTOR PROPHYLAXIS
     Dosage: 3.6 MG, QD
     Route: 058
     Dates: start: 20150626, end: 20150626
  3. G-LASTA [Suspect]
     Active Substance: PEGFILGRASTIM
     Dosage: 3.6 MG, QD
     Route: 058
     Dates: start: 20150717, end: 20150717
  4. RITUXAN [Suspect]
     Active Substance: RITUXIMAB
     Dosage: 500 MG, QD
     Route: 041
     Dates: start: 20150901
  5. ADRIACIN [Suspect]
     Active Substance: DOXORUBICIN HYDROCHLORIDE
     Indication: B-CELL LYMPHOMA
     Dosage: 70 MG, QD
     Route: 041
     Dates: start: 20150624, end: 20150624
  6. ADRIACIN [Suspect]
     Active Substance: DOXORUBICIN HYDROCHLORIDE
     Dosage: 70 MG, QD
     Route: 041
     Dates: start: 20150902
  7. ONCOVIN [Concomitant]
     Active Substance: VINCRISTINE SULFATE
     Dosage: 2 MG, QD
     Route: 041
     Dates: start: 20150804, end: 20150804
  8. PREDONINE [Concomitant]
     Active Substance: PREDNISOLONE
     Indication: B-CELL LYMPHOMA
     Dosage: 100 MG, UNK
     Route: 065
     Dates: start: 20150623
  9. RITUXAN [Suspect]
     Active Substance: RITUXIMAB
     Dosage: 500 MG, QD
     Route: 041
     Dates: start: 20150803, end: 20150803
  10. ADRIACIN [Suspect]
     Active Substance: DOXORUBICIN HYDROCHLORIDE
     Dosage: 70 MG, QD
     Route: 041
     Dates: start: 20150804, end: 20150804
  11. ONCOVIN [Concomitant]
     Active Substance: VINCRISTINE SULFATE
     Indication: B-CELL LYMPHOMA
     Dosage: 2 MG, QD
     Route: 041
     Dates: start: 20150623, end: 20150623
  12. PREDONINE [Concomitant]
     Active Substance: PREDNISOLONE
     Dosage: 30 MG, UNK
     Route: 065
     Dates: start: 20150809, end: 20150809
  13. G-LASTA [Suspect]
     Active Substance: PEGFILGRASTIM
     Dosage: 3.6 MG, QD
     Route: 058
     Dates: start: 20150806, end: 20150806
  14. ENDOXAN                            /00021101/ [Suspect]
     Active Substance: CYCLOPHOSPHAMIDE
     Indication: B-CELL LYMPHOMA
     Dosage: 1100 MG, QD
     Route: 041
     Dates: start: 20150624, end: 20150624
  15. ENDOXAN                            /00021101/ [Suspect]
     Active Substance: CYCLOPHOSPHAMIDE
     Dosage: 1100 MG, QD
     Route: 041
     Dates: start: 20150902
  16. PREDONINE [Concomitant]
     Active Substance: PREDNISOLONE
     Dosage: 100 MG, UNK
     Route: 065
     Dates: start: 20150803
  17. ADRIACIN [Suspect]
     Active Substance: DOXORUBICIN HYDROCHLORIDE
     Dosage: 70 MG, QD
     Route: 041
     Dates: start: 20150715, end: 20150715
  18. ONCOVIN [Concomitant]
     Active Substance: VINCRISTINE SULFATE
     Dosage: 2 MG, QD
     Route: 041
     Dates: start: 20150902, end: 20150902
  19. RITUXAN [Suspect]
     Active Substance: RITUXIMAB
     Dosage: 500 MG, QD
     Route: 041
     Dates: start: 20150714, end: 20150714
  20. ENDOXAN                            /00021101/ [Suspect]
     Active Substance: CYCLOPHOSPHAMIDE
     Dosage: 1100 MG, QD
     Route: 041
     Dates: start: 20150715, end: 20150715
  21. RITUXAN [Suspect]
     Active Substance: RITUXIMAB
     Indication: B-CELL LYMPHOMA
     Dosage: 500 MG, QD
     Route: 041
     Dates: start: 20150623, end: 20150623
  22. ENDOXAN                            /00021101/ [Suspect]
     Active Substance: CYCLOPHOSPHAMIDE
     Dosage: 1100 MG, QD
     Route: 041
     Dates: start: 20150804, end: 20150804
  23. ONCOVIN [Concomitant]
     Active Substance: VINCRISTINE SULFATE
     Dosage: 2 MG, QD
     Route: 041
     Dates: start: 20150715, end: 20150715
  24. PREDONINE [Concomitant]
     Active Substance: PREDNISOLONE
     Dosage: 100 MG, UNK
     Route: 065
     Dates: start: 20150714

REACTIONS (1)
  - Platelet count decreased [Recovered/Resolved]

NARRATIVE: CASE EVENT DATE: 20150809
